FAERS Safety Report 7804250-3 (Version None)
Quarter: 2011Q4

REPORT INFORMATION
  Report Type: 
  Country: None (occurrence: None)
  Receive Date: 20111010
  Receipt Date: 20110929
  Transmission Date: 20120403
  Serious: Yes (Hospitalization, Other)
  Sender: FDA-Public Use
  Company Number: PHFR2011GB04346

PATIENT
  Sex: Male

DRUGS (2)
  1. CLOZAPINE [Suspect]
     Indication: SCHIZOPHRENIA
     Route: 048
     Dates: start: 20060927, end: 20110601
  2. HEROIN [Suspect]

REACTIONS (3)
  - CIRCULATORY COLLAPSE [None]
  - OVERDOSE [None]
  - PNEUMONIA ASPIRATION [None]
